FAERS Safety Report 6329922-1 (Version None)
Quarter: 2009Q3

REPORT INFORMATION
  Report Type: 
  Country: None (occurrence: None)
  Receive Date: 20090825
  Receipt Date: 20090812
  Transmission Date: 20100115
  Serious: Yes (Disabling)
  Sender: FDA-Public Use
  Company Number: FABR-1000885

PATIENT
  Age: 62 Year
  Sex: Male
  Weight: 64.3 kg

DRUGS (9)
  1. FABRAZYME [Suspect]
     Indication: FABRY'S DISEASE
     Dosage: 60 MG, Q2W, INTRAVENOUS
     Route: 042
     Dates: start: 20021205
  2. ALLOPURINOL [Concomitant]
  3. FERROUS SULPHATE (FERROUS SULPHATE) [Concomitant]
  4. FUROSEMIDE [Concomitant]
  5. ALFACALCIDOL (ALFACALCIDOL) [Concomitant]
  6. SODIUM BICARBONATE IN PLASTIC CONTAINER [Concomitant]
  7. RAMIPRIL [Concomitant]
  8. BISOPROLOL FUMARATE [Concomitant]
  9. WARFARIN SODIUM [Concomitant]

REACTIONS (4)
  - DISEASE COMPLICATION [None]
  - FABRY'S DISEASE [None]
  - HAEMODIALYSIS [None]
  - RENAL FAILURE CHRONIC [None]
